FAERS Safety Report 18048236 (Version 1)
Quarter: 2020Q3

REPORT INFORMATION
  Report Type: Spontaneous
  Country: US (occurrence: US)
  Receive Date: 20200720
  Receipt Date: 20200720
  Transmission Date: 20201103
  Serious: Yes (Disabling)
  Sender: FDA-Public Use
  Company Number: None

PATIENT
  Age: 46 Year
  Sex: Female
  Weight: 72 kg

DRUGS (1)
  1. OFLOXACIN 0.3% OPTHALMIC SOLUTION 5ML [Suspect]
     Active Substance: OFLOXACIN
     Indication: SCLERAL DISORDER
     Dates: start: 20200130, end: 20200214

REACTIONS (5)
  - Drug ineffective [None]
  - Gait inability [None]
  - Tendon rupture [None]
  - Tinnitus [None]
  - Muscle strain [None]

NARRATIVE: CASE EVENT DATE: 20200201
